FAERS Safety Report 7017613-3 (Version None)
Quarter: 2010Q3

REPORT INFORMATION
  Report Type: 
  Country: None (occurrence: None)
  Receive Date: 20100909
  Receipt Date: 20100622
  Transmission Date: 20110219
  Serious: No
  Sender: FDA-Public Use
  Company Number: 2010SP035239

PATIENT
  Sex: Female

DRUGS (3)
  1. SAPHRIS [Suspect]
     Indication: BIPOLAR DISORDER
     Dosage: 5 MG;ONCE; SL
     Dates: start: 20100616, end: 20100617
  2. LITHIUM (CON.) [Concomitant]
  3. EFFEXOR XR (CON.) [Concomitant]

REACTIONS (4)
  - DIZZINESS [None]
  - DYSGEUSIA [None]
  - LETHARGY [None]
  - RESTLESS LEGS SYNDROME [None]
